FAERS Safety Report 7841535 (Version 5)
Quarter: 2013Q2

REPORT INFORMATION
  Report Type: Report from Study
  Country: US (occurrence: US)
  Receive Date: 20110304
  Receipt Date: 20130624
  Transmission Date: 20140414
  Serious: Yes (Life-Threatening, Other)
  Sender: FDA-Public Use
  Company Number: PHHY2010US76147

PATIENT
  Age: 77 Year
  Sex: Male

DRUGS (3)
  1. GLEEVEC [Suspect]
     Indication: CHRONIC MYELOID LEUKAEMIA
     Dosage: 200 MG, BID
     Route: 048
     Dates: start: 20101006
  2. GLEEVEC [Suspect]
     Dosage: 300 MG, DAILY
     Route: 048
     Dates: start: 201010, end: 201306
  3. MULTIVITAMINS [Concomitant]

REACTIONS (12)
  - Road traffic accident [Recovered/Resolved]
  - Musculoskeletal stiffness [Unknown]
  - Pain in extremity [Unknown]
  - Thoracic vertebral fracture [Recovered/Resolved]
  - Spinal cord disorder [Recovered/Resolved]
  - Thyroid neoplasm [Recovering/Resolving]
  - Throat irritation [Unknown]
  - Thrombocytopenia [Recovering/Resolving]
  - Periorbital oedema [Recovered/Resolved]
  - Fatigue [Not Recovered/Not Resolved]
  - Weight decreased [Unknown]
  - Dry mouth [Unknown]
